FAERS Safety Report 6182375-9 (Version None)
Quarter: 2009Q2

REPORT INFORMATION
  Report Type: 
  Country: None (occurrence: None)
  Receive Date: 20090505
  Receipt Date: 20090505
  Transmission Date: 20091009
  Serious: Yes (Hospitalization)
  Sender: FDA-Public Use
  Company Number: None

PATIENT
  Sex: Female
  Weight: 68 kg

DRUGS (4)
  1. TAXOL [Suspect]
     Dosage: 276.8 MG
  2. CISPLATIN [Suspect]
     Dosage: 86.5 MG
  3. DOXORUBICIN HCL [Suspect]
     Dosage: 77.85 MG
  4. G-CSF (FILGRASTIM, AMGEN) [Suspect]
     Dosage: 6 MG

REACTIONS (4)
  - DEHYDRATION [None]
  - DIARRHOEA [None]
  - HYPOTENSION [None]
  - TACHYCARDIA [None]
